FAERS Safety Report 15615391 (Version 1)
Quarter: 2018Q4

REPORT INFORMATION
  Report Type: Spontaneous
  Country: FR (occurrence: FR)
  Receive Date: 20181114
  Receipt Date: 20181114
  Transmission Date: 20190205
  Serious: Yes (Other)
  Sender: FDA-Public Use
  Company Number: FR-ASTRAZENECA-2017SF25529

PATIENT
  Sex: Male

DRUGS (8)
  1. MOPRAL [Suspect]
     Active Substance: OMEPRAZOLE
     Dosage: (20 MG OF MYLAN AND BIOGARAN) EVERY 4 TO 5 DAYS UNKNOWN
     Route: 048
  2. INEXIUM [Suspect]
     Active Substance: ESOMEPRAZOLE
     Indication: GASTROOESOPHAGEAL REFLUX DISEASE
     Dosage: 20.0MG UNKNOWN
     Route: 048
  3. INEXIUM [Suspect]
     Active Substance: ESOMEPRAZOLE
     Indication: HIATUS HERNIA
     Dosage: 20.0MG UNKNOWN
     Route: 048
  4. INEXIUM [Suspect]
     Active Substance: ESOMEPRAZOLE
     Indication: GASTROOESOPHAGEAL REFLUX DISEASE
     Dosage: 10 MG, EVERY 4 TO 5 DAYS UNKNOWN
     Route: 048
  5. INEXIUM [Suspect]
     Active Substance: ESOMEPRAZOLE
     Indication: HIATUS HERNIA
     Dosage: 40 MG, GENERIC
     Route: 065
  6. MOPRAL [Suspect]
     Active Substance: OMEPRAZOLE
     Dosage: 20.0MG UNKNOWN
     Route: 048
  7. INEXIUM [Suspect]
     Active Substance: ESOMEPRAZOLE
     Indication: GASTROOESOPHAGEAL REFLUX DISEASE
     Dosage: 40 MG, GENERIC
     Route: 065
  8. INEXIUM [Suspect]
     Active Substance: ESOMEPRAZOLE
     Indication: HIATUS HERNIA
     Dosage: 10 MG, EVERY 4 TO 5 DAYS UNKNOWN
     Route: 048

REACTIONS (11)
  - Fatigue [Unknown]
  - Intentional product misuse [Unknown]
  - Asthma [Unknown]
  - Weight decreased [Unknown]
  - Off label use [Unknown]
  - Product use issue [Unknown]
  - Palpitations [Unknown]
  - Bronchial oedema [Unknown]
  - Dyspnoea [Unknown]
  - Oesophageal infection [Unknown]
  - Insomnia [Unknown]
